FAERS Safety Report 7086996-0 (Version None)
Quarter: 2010Q4

REPORT INFORMATION
  Report Type: 
  Country: None (occurrence: None)
  Receive Date: 20101106
  Receipt Date: 20101025
  Transmission Date: 20110411
  Serious: No
  Sender: FDA-Public Use
  Company Number: US-WYE-H18343310

PATIENT
  Sex: Female
  Weight: 65.83 kg

DRUGS (7)
  1. EFFEXOR [Suspect]
     Indication: DEPRESSION
     Dates: start: 20000101
  2. EFFEXOR [Suspect]
  3. EFFEXOR [Suspect]
     Dates: end: 20100401
  4. VENLAFAXINE HYDROCHLORIDE [Suspect]
     Dates: start: 20100401
  5. ZOLPIDEM [Concomitant]
  6. DYAZIDE [Concomitant]
  7. DIAMOX #1 [Concomitant]

REACTIONS (3)
  - ANXIETY [None]
  - DYSPNOEA [None]
  - EMOTIONAL DISORDER [None]
